FAERS Safety Report 24323466 (Version 1)
Quarter: 2024Q3

REPORT INFORMATION
  Report Type: Spontaneous
  Country: CN (occurrence: CN)
  Receive Date: 20240916
  Receipt Date: 20240916
  Transmission Date: 20241016
  Serious: Yes (Hospitalization, Other)
  Sender: VIFOR
  Company Number: None

PATIENT
  Age: 58 Year

DRUGS (4)
  1. VELPHORO [Suspect]
     Active Substance: SUCROFERRIC OXYHYDROXIDE
     Indication: Hyperphosphataemia
     Dosage: 1 TABLET, TID
     Route: 048
     Dates: start: 2024
  2. FELODIPINE [Concomitant]
     Active Substance: FELODIPINE
     Indication: Hypertension
  3. CLOPIDOGREL [Concomitant]
     Active Substance: CLOPIDOGREL BISULFATE
     Indication: Antiplatelet therapy
  4. ATORVASTATIN [Concomitant]
     Active Substance: ATORVASTATIN
     Indication: Dyslipidaemia

REACTIONS (3)
  - Atrial fibrillation [Recovering/Resolving]
  - Blood pressure decreased [Recovering/Resolving]
  - Chest discomfort [Unknown]

NARRATIVE: CASE EVENT DATE: 20240101
